FAERS Safety Report 6756703-7 (Version None)
Quarter: 2010Q2

REPORT INFORMATION
  Report Type: 
  Country: None (occurrence: None)
  Receive Date: 20100604
  Receipt Date: 20100521
  Transmission Date: 20101027
  Serious: Yes (Hospitalization, Other)
  Sender: FDA-Public Use
  Company Number: US-ELI_LILLY_AND_COMPANY-US201005006842

PATIENT
  Age: 49 Year
  Sex: Female

DRUGS (18)
  1. FORTEO [Suspect]
     Indication: HYPOCALCAEMIA
     Dosage: 60 UG, DAILY (1/D)
     Dates: start: 20020101
  2. FORTEO [Suspect]
     Dosage: 20 UG, DAILY (1/D)
  3. FORTEO [Suspect]
     Dosage: 80 UG, DAILY (1/D)
  4. ZYPREXA [Concomitant]
  5. VENTOLIN HFA [Concomitant]
  6. COGENTIN [Concomitant]
  7. CALCIUM W/VITAMIN D NOS [Concomitant]
  8. VITAMIN B12 NOS [Concomitant]
  9. LASIX [Concomitant]
  10. GABAPENTIN [Concomitant]
  11. LACTULOSE [Concomitant]
  12. SYNTHROID [Concomitant]
     Dosage: 112 UG, UNKNOWN
  13. MULTI-VITAMIN [Concomitant]
  14. MIRALAX [Concomitant]
  15. ZANTAC [Concomitant]
  16. REQUIP [Concomitant]
  17. SENNA [Concomitant]
  18. ZOLOFT [Concomitant]

REACTIONS (6)
  - CONVULSION [None]
  - GENERAL PHYSICAL HEALTH DETERIORATION [None]
  - HYPOCALCAEMIA [None]
  - INTENTIONAL DRUG MISUSE [None]
  - OFF LABEL USE [None]
  - OVERDOSE [None]
